FAERS Safety Report 7961892-2 (Version None)
Quarter: 2011Q4

REPORT INFORMATION
  Report Type: 
  Country: None (occurrence: None)
  Receive Date: 20111207
  Receipt Date: 20111122
  Transmission Date: 20120403
  Serious: Yes (Hospitalization)
  Sender: FDA-Public Use
  Company Number: CN-ROCHE-1015725

PATIENT
  Age: 61 Year
  Sex: Female
  Weight: 51 kg

DRUGS (15)
  1. MAGNESIUM ISOGLYCYRRHIZINATE [Concomitant]
     Dates: start: 20111115
  2. CIMETIDINE [Concomitant]
     Dates: start: 20111115, end: 20111116
  3. TROPISETRON [Concomitant]
     Dates: start: 20111115, end: 20111116
  4. COENZYME COMPLEX (UNK INGREDIENTS) [Concomitant]
     Dosage: DOSE: 200/U
     Dates: start: 20111124, end: 20111125
  5. HERCEPTIN [Suspect]
     Route: 042
     Dates: start: 20111124
  6. DEXAMETHASONE [Concomitant]
     Dates: start: 20111115, end: 20111116
  7. DEXAMETHASONE [Concomitant]
     Dates: start: 20111124, end: 20111125
  8. CIMETIDINE [Concomitant]
     Dates: start: 20111124, end: 20111125
  9. HERCEPTIN [Suspect]
     Indication: BREAST CANCER
     Route: 042
     Dates: start: 20111115, end: 20111121
  10. COENZYME COMPLEX (UNK INGREDIENTS) [Concomitant]
     Dosage: DOSE: 200/U
     Dates: start: 20111115, end: 20111116
  11. PACLITAXEL [Suspect]
     Route: 042
     Dates: start: 20111124
  12. PACLITAXEL [Suspect]
     Indication: BREAST CANCER
     Route: 042
     Dates: start: 20111115, end: 20111121
  13. CARBOPLATIN [Suspect]
     Indication: BREAST CANCER
     Route: 042
     Dates: start: 20111115, end: 20111121
  14. CARBOPLATIN [Suspect]
     Route: 042
     Dates: start: 20111124
  15. TROPISETRON [Concomitant]
     Dates: start: 20111124, end: 20111125

REACTIONS (2)
  - HEPATIC FUNCTION ABNORMAL [None]
  - HEPATIC ENZYME INCREASED [None]
